FAERS Safety Report 7242719-3 (Version None)
Quarter: 2011Q1

REPORT INFORMATION
  Report Type: 
  Country: None (occurrence: None)
  Receive Date: 20110125
  Receipt Date: 20110112
  Transmission Date: 20110831
  Serious: No
  Sender: FDA-Public Use
  Company Number: PHHY2010US89508

PATIENT
  Sex: Female

DRUGS (8)
  1. EXFORGE HCT [Suspect]
     Dosage: UNK
  2. PAXIL [Concomitant]
  3. WELCHOL [Concomitant]
  4. METHADONE [Concomitant]
  5. ACTOS [Concomitant]
  6. CALCIUM [Concomitant]
  7. FISH OIL [Concomitant]
  8. MEXAFORM [Concomitant]

REACTIONS (1)
  - NO ADVERSE EVENT [None]
